FAERS Safety Report 5627370-0 (Version None)
Quarter: 2008Q1

REPORT INFORMATION
  Report Type: 
  Country: None (occurrence: None)
  Receive Date: 20080215
  Receipt Date: 20080207
  Transmission Date: 20080703
  Serious: Yes (Other)
  Sender: FDA-Public Use
  Company Number: PT-BAYER-200812750GPV

PATIENT
  Age: 60 Year
  Sex: Female

DRUGS (1)
  1. ULTRAVIST 300/ IOPRAMIDE [Suspect]
     Indication: COMPUTERISED TOMOGRAM
     Route: 042
     Dates: start: 20080129, end: 20080129

REACTIONS (7)
  - ANAPHYLACTOID REACTION [None]
  - BLISTER [None]
  - ERYTHEMA [None]
  - FACE OEDEMA [None]
  - OEDEMA MOUTH [None]
  - RESPIRATORY DISTRESS [None]
  - TONGUE OEDEMA [None]
